FAERS Safety Report 18905769 (Version 1)
Quarter: 2021Q1

REPORT INFORMATION
  Report Type: Spontaneous
  Country: CA (occurrence: CA)
  Receive Date: 20210217
  Receipt Date: 20210217
  Transmission Date: 20210420
  Serious: Yes (Hospitalization)
  Sender: FDA-Public Use
  Company Number: CA-ANIPHARMA-2021-CA-000201

PATIENT
  Age: 58 Year
  Sex: Female

DRUGS (6)
  1. ANASTROZOLE. [Suspect]
     Active Substance: ANASTROZOLE
     Indication: BREAST CANCER
     Dosage: UNKNOWN DOSE AND FREQUENCY
     Route: 048
  2. AFINITOR [Suspect]
     Active Substance: EVEROLIMUS
     Dosage: 5 MG UNK / 10 MG UNK
     Route: 048
  3. TAMOXIFEN [Suspect]
     Active Substance: TAMOXIFEN
     Dosage: UNKNOWN DOSE AND FREQUENCY
     Route: 048
  4. LETROZOLE. [Suspect]
     Active Substance: LETROZOLE
     Dosage: UNKNOWN DOSE AND FREQUENCY
     Route: 065
  5. GOSERELIN [Suspect]
     Active Substance: GOSERELIN
     Dosage: UNKNOWN DOSE AND FREQUENCY
     Route: 058
  6. CAPECITABINE. [Suspect]
     Active Substance: CAPECITABINE
     Dosage: UNKNOWN DOSE AND FREQUENCY
     Route: 065

REACTIONS (8)
  - Malignant neoplasm progression [Unknown]
  - Breast cancer metastatic [Unknown]
  - Malaise [Unknown]
  - Platelet count increased [Unknown]
  - Drug ineffective [Unknown]
  - Blood bilirubin increased [Unknown]
  - Ascites [Unknown]
  - Platelet count decreased [Unknown]
